FAERS Safety Report 19960022 (Version 1)
Quarter: 2021Q4

REPORT INFORMATION
  Report Type: Spontaneous
  Country: US (occurrence: US)
  Receive Date: 20211015
  Receipt Date: 20211015
  Transmission Date: 20220304
  Serious: No
  Sender: FDA-Public Use
  Company Number: None

PATIENT
  Age: 0 Day
  Sex: Female

DRUGS (2)
  1. ORENCIA [Suspect]
     Active Substance: ABATACEPT
  2. RITUXAN [Suspect]
     Active Substance: RITUXIMAB

REACTIONS (1)
  - Hypertension [None]

NARRATIVE: CASE EVENT DATE: 20211014
